FAERS Safety Report 9758436 (Version 1)
Quarter: 2013Q4

REPORT INFORMATION
  Report Type: Spontaneous
  Country: DE (occurrence: DE)
  Receive Date: 20131216
  Receipt Date: 20131216
  Transmission Date: 20140711
  Serious: Yes (Life-Threatening, Hospitalization, Disabling)
  Sender: FDA-Public Use
  Company Number: DE-ROXANE LABORATORIES, INC.-2013-RO-01949RO

PATIENT
  Age: 43 Year
  Sex: Male

DRUGS (1)
  1. DIAZEPAM [Suspect]
     Dosage: 250 MG

REACTIONS (6)
  - Intentional overdose [Unknown]
  - Hypoxia [Unknown]
  - Hypoxic-ischaemic encephalopathy [Unknown]
  - Respiratory depression [Unknown]
  - Parkinsonism [Not Recovered/Not Resolved]
  - Brain injury [Unknown]
